FAERS Safety Report 24737080 (Version 3)
Quarter: 2025Q1

REPORT INFORMATION
  Report Type: Spontaneous
  Country: DK (occurrence: DK)
  Receive Date: 20241216
  Receipt Date: 20250304
  Transmission Date: 20250409
  Serious: Yes (Hospitalization)
  Sender: NOVARTIS
  Company Number: DK-002147023-NVSC2024DK235286

PATIENT
  Age: 30 Year
  Sex: Female

DRUGS (2)
  1. KESIMPTA [Suspect]
     Active Substance: OFATUMUMAB
     Indication: Relapsing multiple sclerosis
     Dosage: UNK, Q4W
     Route: 058
     Dates: start: 20230223
  2. COPAXONE [Concomitant]
     Active Substance: GLATIRAMER ACETATE
     Indication: Product used for unknown indication
     Route: 065
     Dates: start: 20240904

REACTIONS (4)
  - Neutropenia [Unknown]
  - Abscess oral [Unknown]
  - Fungal infection [Unknown]
  - Infection [Unknown]

NARRATIVE: CASE EVENT DATE: 20240809
